FAERS Safety Report 20430086 (Version 1)
Quarter: 2022Q1

REPORT INFORMATION
  Report Type: Report from Study
  Country: FR (occurrence: FR)
  Receive Date: 20220204
  Receipt Date: 20220204
  Transmission Date: 20220424
  Serious: Yes (Other)
  Sender: FDA-Public Use
  Company Number: FR-SERVIER-S20001954

PATIENT

DRUGS (11)
  1. PEGASPARGASE [Suspect]
     Active Substance: PEGASPARGASE
     Indication: Acute lymphocytic leukaemia
     Dosage: 3775 IU, D12, D26
     Route: 042
     Dates: start: 20200127, end: 20200218
  2. METHOTREXATE [Suspect]
     Active Substance: METHOTREXATE
     Indication: Acute lymphocytic leukaemia
     Dosage: 15 MG, D13, D25
     Route: 037
     Dates: start: 20200128, end: 20200217
  3. VINCRISTINE [Suspect]
     Active Substance: VINCRISTINE
     Indication: Acute lymphocytic leukaemia
     Dosage: 2 MG, D8, D15
     Route: 042
     Dates: start: 20200123, end: 20200130
  4. VINCRISTINE [Suspect]
     Active Substance: VINCRISTINE
     Dosage: 1.5 MG, D22
     Route: 042
     Dates: start: 20200214, end: 20200214
  5. DAUNORUBICIN [Suspect]
     Active Substance: DAUNORUBICIN
     Indication: Acute lymphocytic leukaemia
     Dosage: 60.5 MG, D8, D15, D22
     Route: 042
     Dates: start: 20200123, end: 20200214
  6. CYCLOPHOSPHAMIDE [Suspect]
     Active Substance: CYCLOPHOSPHAMIDE
     Indication: Acute lymphocytic leukaemia
     Dosage: 1520 MG, D9
     Route: 042
     Dates: start: 20200127, end: 20200127
  7. PREDNISOLONE [Suspect]
     Active Substance: PREDNISOLONE
     Indication: Acute lymphocytic leukaemia
     Dosage: 95 MG, QD, D1 TO D28
     Route: 048
     Dates: start: 20200116, end: 20200212
  8. PREDNISOLONE [Suspect]
     Active Substance: PREDNISOLONE
     Dosage: 80 MG, D29
     Route: 048
     Dates: start: 20200213, end: 20200213
  9. PREDNISOLONE [Suspect]
     Active Substance: PREDNISOLONE
     Dosage: 70 MG, D30
     Route: 048
     Dates: start: 20200214
  10. CYTARABINE [Suspect]
     Active Substance: CYTARABINE
     Indication: Acute lymphocytic leukaemia
     Dosage: 30 MG, D13, D25
     Route: 037
     Dates: start: 20200128, end: 20200217
  11. HYDROCORTISONE [Suspect]
     Active Substance: HYDROCORTISONE
     Indication: Acute lymphocytic leukaemia
     Dosage: 30 MG, D13, D25
     Route: 037
     Dates: start: 20200128, end: 20200217

REACTIONS (6)
  - Osteonecrosis [Not Recovered/Not Resolved]
  - Anal ulcer [Not Recovered/Not Resolved]
  - Hypertriglyceridaemia [Not Recovered/Not Resolved]
  - Laryngitis allergic [Recovered/Resolved]
  - Dermatitis allergic [Recovered/Resolved]
  - Hypofibrinogenaemia [Recovered/Resolved]

NARRATIVE: CASE EVENT DATE: 20200129
